FAERS Safety Report 20362702 (Version 1)
Quarter: 2022Q1

REPORT INFORMATION
  Report Type: Spontaneous
  Country: US (occurrence: None)
  Receive Date: 20220120
  Receipt Date: 20220120
  Transmission Date: 20220423
  Serious: Yes (Other)
  Sender: FDA-Public Use
  Company Number: None

PATIENT
  Age: 68 Year
  Sex: Female
  Weight: 63 kg

DRUGS (1)
  1. XARELTO [Suspect]
     Active Substance: RIVAROXABAN
     Indication: Thrombosis prophylaxis
     Dosage: OTHER QUANTITY : 30 TABLET(S);?OTHER FREQUENCY : EVERY DAY;?
     Route: 048
     Dates: start: 20200513, end: 20200617

REACTIONS (9)
  - Deep vein thrombosis [None]
  - Thrombosis [None]
  - Therapy interrupted [None]
  - Oedema [None]
  - Fluid retention [None]
  - Weight increased [None]
  - International normalised ratio fluctuation [None]
  - Post procedural complication [None]
  - Poor peripheral circulation [None]

NARRATIVE: CASE EVENT DATE: 20210617
